FAERS Safety Report 7681744-5 (Version None)
Quarter: 2011Q3

REPORT INFORMATION
  Report Type: 
  Country: None (occurrence: None)
  Receive Date: 20110812
  Receipt Date: 20110805
  Transmission Date: 20111222
  Serious: Yes (Other)
  Sender: FDA-Public Use
  Company Number: JP-GILEAD-E2B_00001407

PATIENT
  Age: 8 Decade
  Sex: Female

DRUGS (2)
  1. AMBRISENTAN [Suspect]
     Indication: PULMONARY HYPERTENSION
     Dosage: 5MG PER DAY
     Route: 048
     Dates: start: 20101117
  2. AMBRISENTAN [Suspect]
     Route: 048
     Dates: start: 20101110

REACTIONS (1)
  - LIVER FUNCTION TEST ABNORMAL [None]
